FAERS Safety Report 9036263 (Version 1)
Quarter: 2013Q1

REPORT INFORMATION
  Report Type: Spontaneous
  Country: US (occurrence: None)
  Receive Date: 20130117
  Receipt Date: 20130117
  Transmission Date: 20140127
  Serious: Yes (Hospitalization)
  Sender: FDA-Public Use
  Company Number: None

PATIENT
  Age: 77 Year
  Sex: Female
  Weight: 61.69 kg

DRUGS (2)
  1. GEMCITABINE [Suspect]
     Indication: BLADDER CANCER
     Dosage: 2100 MG EVERY 2 WEEKS, IV
     Route: 042
     Dates: start: 20130102, end: 20130116
  2. CISPLATIN 120MG [Suspect]
     Dosage: 120 MG EVERY 2 WEEKS, IV
     Route: 042
     Dates: start: 20130103

REACTIONS (1)
  - Pyrexia [None]
